FAERS Safety Report 14627807 (Version 1)
Quarter: 2018Q1

REPORT INFORMATION
  Report Type: Spontaneous
  Country: BR (occurrence: BR)
  Receive Date: 20180312
  Receipt Date: 20180312
  Transmission Date: 20180509
  Serious: Yes (Other)
  Sender: FDA-Public Use
  Company Number: BR-ALLERGAN-1812623US

PATIENT
  Age: 57 Year
  Sex: Female

DRUGS (1)
  1. AZELAIC ACID UNK [Suspect]
     Active Substance: AZELAIC ACID
     Indication: SKIN DISCOLOURATION
     Dosage: UNSPECIFIED DOSE ONCE
     Route: 061
     Dates: start: 20180227, end: 20180227

REACTIONS (3)
  - Off label use [Unknown]
  - Swelling face [Not Recovered/Not Resolved]
  - Eye irritation [Not Recovered/Not Resolved]

NARRATIVE: CASE EVENT DATE: 20180227
